FAERS Safety Report 9276268 (Version 1)
Quarter: 2013Q2

REPORT INFORMATION
  Report Type: Report from Study
  Country: NL (occurrence: NL)
  Receive Date: 20130507
  Receipt Date: 20130507
  Transmission Date: 20140414
  Serious: Yes (Hospitalization)
  Sender: FDA-Public Use
  Company Number: PHHY2013NL043485

PATIENT
  Age: 84 Year
  Sex: Male

DRUGS (3)
  1. ZOMETA [Suspect]
     Indication: PROSTATE CANCER METASTATIC
     Dosage: 4MG/100ML SOLUTION FOR IV INFUSION ONCE EVERY 28 DAYS
  2. ZOMETA [Suspect]
     Dosage: 4MG/100ML SOLUTION FOR IV INFUSION ONCE EVERY 28 DAYS
     Dates: start: 20111114
  3. ZOMETA [Suspect]
     Dosage: 4MG/100ML SOLUTION FOR IV INFUSION ONCE EVERY 28 DAYS
     Dates: start: 20130408

REACTIONS (4)
  - Cerebrovascular accident [Recovered/Resolved with Sequelae]
  - Cerebral thrombosis [Unknown]
  - Paralysis [Unknown]
  - Communication disorder [Unknown]
